FAERS Safety Report 8993629 (Version 1)
Quarter: 2013Q1

REPORT INFORMATION
  Report Type: Spontaneous
  Country: US (occurrence: US)
  Receive Date: 20130102
  Receipt Date: 20130102
  Transmission Date: 20140127
  Serious: Yes (Other)
  Sender: FDA-Public Use
  Company Number: PHEH2012US021707

PATIENT
  Age: 74 Year
  Sex: Male

DRUGS (21)
  1. EXJADE [Suspect]
     Indication: MYELODYSPLASTIC SYNDROME
     Dosage: 4 DF, QD
     Route: 048
     Dates: start: 20120214, end: 20120507
  2. EXJADE [Suspect]
     Indication: MYELOPROLIFERATIVE DISORDER
     Dosage: 2000 MG, DAILY
     Route: 048
     Dates: start: 20120515, end: 20120605
  3. ATORVASTATIN [Concomitant]
     Dosage: 20 MG, DAILY
     Route: 048
  4. METOPROLOL [Concomitant]
     Dosage: 25 MG, BID
     Route: 048
  5. METFORMIN [Concomitant]
     Dosage: 500 MG, QD
     Route: 048
  6. AMARYL [Concomitant]
     Dosage: 2 MG, QD
     Route: 048
  7. PREDNISONE [Concomitant]
     Dosage: 5 MG, QD
     Route: 048
  8. OXYGEN [Concomitant]
     Dosage: UNK UKN, UNK
  9. ISOSORBIDE MONONITE [Concomitant]
     Dosage: 60 MG, BID
     Route: 048
  10. NORVASC [Concomitant]
     Dosage: 5 MG, QD
     Route: 048
  11. PROTONIX [Concomitant]
     Dosage: 40 MG, QD
     Route: 048
  12. NITROSTAT [Concomitant]
     Dosage: 0.4 MG, PRN
     Route: 060
  13. PROAIR HFA [Concomitant]
     Indication: DYSPNOEA
     Dosage: 2 PUFF AS NEEDED
  14. ASPIRIN [Concomitant]
     Dosage: 81 MG, DAILY
     Route: 048
  15. ALPRAZOLAM [Concomitant]
     Dosage: 1 MG, BID
     Route: 048
  16. RANEXA [Concomitant]
     Dosage: UNK UKN, UNK
  17. OXYCODON [Concomitant]
     Dosage: 1 DF, 4-6 TIMES AS NEEDED
  18. SLOW-MAG [Concomitant]
     Dosage: 2 DF, DAILY
  19. LEVAQUIN [Concomitant]
     Dosage: 750 MG, QD
     Route: 048
  20. IMDUR [Concomitant]
     Dosage: 1 DF, QD
     Route: 048
  21. TRANSFUSIONS [Concomitant]
     Dosage: UNK UKN, UNK

REACTIONS (6)
  - Coronary artery disease [Unknown]
  - Thrombocytopenia [Unknown]
  - Anaemia [Unknown]
  - Chest pain [Unknown]
  - Tinnitus [Recovered/Resolved]
  - Erythema [Unknown]
